FAERS Safety Report 6671655-6 (Version None)
Quarter: 2010Q2

REPORT INFORMATION
  Report Type: 
  Country: None (occurrence: None)
  Receive Date: 20100407
  Receipt Date: 20100329
  Transmission Date: 20101027
  Serious: Yes (Other)
  Sender: FDA-Public Use
  Company Number: BE-BAXTER-2010BH008227

PATIENT

DRUGS (7)
  1. IFOSFAMIDE [Suspect]
     Indication: HEAD AND NECK CANCER
     Route: 042
  2. MESNA [Suspect]
     Indication: HEAD AND NECK CANCER
     Route: 040
  3. MESNA [Suspect]
     Route: 042
  4. DOCETAXEL [Suspect]
     Indication: HEAD AND NECK CANCER
     Route: 042
  5. CISPLATIN [Suspect]
     Indication: HEAD AND NECK CANCER
     Route: 042
  6. METHYLPREDNISOLONE [Concomitant]
     Indication: PROPHYLAXIS OF NAUSEA AND VOMITING
     Route: 048
  7. ONDANSETRON [Concomitant]
     Indication: PROPHYLAXIS OF NAUSEA AND VOMITING
     Route: 042

REACTIONS (1)
  - THROMBOCYTOPENIA [None]
